FAERS Safety Report 8059805-0 (Version None)
Quarter: 2012Q1

REPORT INFORMATION
  Report Type: 
  Country: None (occurrence: None)
  Receive Date: 20120120
  Receipt Date: 20120106
  Transmission Date: 20120608
  Serious: Yes (Hospitalization)
  Sender: FDA-Public Use
  Company Number: DE-CELGENEUS-062-50794-10071579

PATIENT
  Age: 69 Year
  Sex: Male
  Weight: 70.9 kg

DRUGS (10)
  1. ONDANSETRON [Concomitant]
     Route: 065
     Dates: start: 20100716, end: 20100720
  2. CIPROFLOXACIN [Concomitant]
     Indication: INFECTION PROPHYLAXIS
     Dosage: 500 MILLIGRAM
     Route: 048
     Dates: start: 20100716
  3. XIPAMID [Concomitant]
     Route: 065
  4. RAMIPRIL [Concomitant]
     Route: 065
  5. TORSEMIDE [Concomitant]
     Route: 065
  6. CEFTRIAXONE [Concomitant]
     Dosage: 2 GRAM
     Route: 041
     Dates: start: 20100716
  7. DIPYRONE TAB [Concomitant]
     Dosage: 300 MG
     Route: 065
     Dates: start: 20100716, end: 20100717
  8. MOLSIDOMIN [Concomitant]
     Route: 065
  9. VIDAZA [Suspect]
     Dosage: 135 MILLIGRAM
     Route: 041
     Dates: start: 20100715, end: 20100720
  10. PLATELETS [Concomitant]
     Route: 065
     Dates: start: 20100715, end: 20100715

REACTIONS (1)
  - ACUTE MYOCARDIAL INFARCTION [None]
